FAERS Safety Report 17249200 (Version 4)
Quarter: 2020Q3

REPORT INFORMATION
  Report Type: Report from Study
  Country: US (occurrence: US)
  Receive Date: 20200108
  Receipt Date: 20200723
  Transmission Date: 20201102
  Serious: No
  Sender: FDA-Public Use
  Company Number: NVSC2020US002878

PATIENT
  Age: 82 Year
  Sex: Female

DRUGS (1)
  1. ENTRESTO [Suspect]
     Active Substance: SACUBITRIL\VALSARTAN
     Indication: PRODUCT USED FOR UNKNOWN INDICATION
     Dosage: 50 MG, BID (24 MG SACUBITRIL, 26 MG VALSARTAN)
     Route: 048
     Dates: start: 201912

REACTIONS (10)
  - Throat clearing [Unknown]
  - Product dose omission issue [Recovering/Resolving]
  - Abdominal distension [Unknown]
  - Productive cough [Unknown]
  - Hypoacusis [Unknown]
  - Weight decreased [Unknown]
  - Rhinorrhoea [Unknown]
  - Therapeutic response unexpected [Recovering/Resolving]
  - Oropharyngeal pain [Unknown]
  - Headache [Not Recovered/Not Resolved]

NARRATIVE: CASE EVENT DATE: 201912
